FAERS Safety Report 4730851-5 (Version None)
Quarter: 2005Q3

REPORT INFORMATION
  Report Type: 
  Country: None (occurrence: None)
  Receive Date: 20050719
  Receipt Date: 20040707
  Transmission Date: 20060218
  Serious: Yes (Hospitalization)
  Sender: FDA-Public Use
  Company Number: 192138

PATIENT
  Age: 56 Year
  Sex: Female
  Weight: 48.0813 kg

DRUGS (9)
  1. AVONEX [Suspect]
     Indication: MULTIPLE SCLEROSIS
     Dosage: 30 UG;QW;IM     30 UG;QW;IM
     Route: 030
     Dates: start: 19990126, end: 20031101
  2. AVONEX [Suspect]
     Indication: MULTIPLE SCLEROSIS
     Dosage: 30 UG;QW;IM     30 UG;QW;IM
     Route: 030
     Dates: start: 20031101
  3. 4-AMINOPYRIDINE [Concomitant]
  4. METHYLPHENIDATE HCL [Concomitant]
  5. NEURONTIN [Concomitant]
  6. BACLOFEN [Concomitant]
  7. NAPROXEN [Concomitant]
  8. FLONASE [Concomitant]
  9. FEMHRT [Concomitant]

REACTIONS (3)
  - CARPAL TUNNEL SYNDROME [None]
  - CONVULSION [None]
  - INFLUENZA LIKE ILLNESS [None]
